FAERS Safety Report 7260607-3 (Version None)
Quarter: 2011Q1

REPORT INFORMATION
  Report Type: 
  Country: None (occurrence: None)
  Receive Date: 20110130
  Receipt Date: 20101207
  Transmission Date: 20110831
  Serious: No
  Sender: FDA-Public Use
  Company Number: US-ABBOTT-10P-163-0684624-00

PATIENT
  Age: 24 Year
  Sex: Female

DRUGS (3)
  1. HUMIRA [Suspect]
     Indication: CROHN'S DISEASE
     Dates: start: 20100914
  2. ACYCLOVIR [Concomitant]
     Indication: GENITAL HERPES
     Dosage: AS NEEDED
  3. TYLENOL-500 [Concomitant]
     Indication: PAIN
     Dosage: AS NEEDED

REACTIONS (19)
  - INJECTION SITE INDURATION [None]
  - HAEMORRHAGE [None]
  - RASH PRURITIC [None]
  - INJECTION SITE DISCOLOURATION [None]
  - INJECTION SITE HAEMORRHAGE [None]
  - ASTHENIA [None]
  - INJECTION SITE URTICARIA [None]
  - INJECTION SITE HAEMATOMA [None]
  - ACNE [None]
  - SCAR [None]
  - RASH PAPULAR [None]
  - PAIN [None]
  - DRY SKIN [None]
  - CROHN'S DISEASE [None]
  - HAEMATOCHEZIA [None]
  - SKIN DISCOLOURATION [None]
  - ERYTHEMA [None]
  - DYSPNOEA [None]
  - INSOMNIA [None]
